FAERS Safety Report 9952458 (Version 1)
Quarter: 2014Q1

REPORT INFORMATION
  Report Type: Report from Study
  Country: US (occurrence: US)
  Receive Date: 20140304
  Receipt Date: 20140304
  Transmission Date: 20141002
  Serious: No
  Sender: FDA-Public Use
  Company Number: US-ABBVIE-13P-163-1080298-00

PATIENT
  Age: 55 Year
  Sex: Female

DRUGS (19)
  1. HUMIRA [Suspect]
     Indication: PSORIATIC ARTHROPATHY
  2. PREDNISONE [Concomitant]
     Indication: PSORIATIC ARTHROPATHY
     Dosage: 5 MG DAILY
     Route: 048
  3. PREDNISONE [Concomitant]
     Indication: ASTHMA
  4. PREDNISONE [Concomitant]
     Indication: MULTIPLE SCLEROSIS
  5. METHOTREXATE [Concomitant]
     Indication: PSORIATIC ARTHROPATHY
     Dosage: 2.5 MG 5 TABLETS WEEKLY
     Route: 048
  6. SIMVASTATIN [Concomitant]
     Indication: BLOOD CHOLESTEROL
     Dosage: 25 MG DAILY
     Route: 048
  7. MELOXICAM [Concomitant]
     Indication: MULTIPLE SCLEROSIS
     Dosage: 7.5 MG DAILY
     Route: 048
  8. AMITRIPTYLINE [Concomitant]
     Indication: MULTIPLE SCLEROSIS
     Dosage: 25 MG DAILY
     Route: 048
  9. FOLIC ACID [Concomitant]
     Indication: VITAMIN SUPPLEMENTATION
     Dosage: 2 MG DAILY
     Route: 048
  10. LISINOPRIL [Concomitant]
     Indication: BLOOD PRESSURE
     Dosage: 10 MG DAILY
     Route: 048
  11. ALBUTERAL [Concomitant]
     Indication: ASTHMA
  12. IPRATROPIUM BROMIDE [Concomitant]
     Indication: HYPERSENSITIVITY
     Dosage: 2 SPRAYS EACH NARE DAILY
  13. FLONASE [Concomitant]
     Indication: HYPERSENSITIVITY
     Dosage: 1 SPRAY EACH NARE DAILY
  14. AMBIEN [Concomitant]
     Indication: INSOMNIA
     Dosage: 10 MG DAILY
     Route: 048
  15. SINGULAIR [Concomitant]
     Indication: HYPERSENSITIVITY
     Dosage: 10 MG DAILY
     Route: 048
  16. BABY ASPIRIN [Concomitant]
     Indication: PROPHYLAXIS
     Dosage: 81 MG DAILY
     Route: 048
  17. XOPENEX [Concomitant]
     Indication: ASTHMA
     Dosage: INHALER
  18. TRAMADOL [Concomitant]
     Indication: PSORIATIC ARTHROPATHY
     Route: 048
  19. UNKNOWN MEDICATIONS [Concomitant]
     Indication: PRODUCT USED FOR UNKNOWN INDICATION

REACTIONS (4)
  - Wrong technique in drug usage process [Not Recovered/Not Resolved]
  - Incorrect route of drug administration [Not Recovered/Not Resolved]
  - Injection site swelling [Not Recovered/Not Resolved]
  - Injection site haemorrhage [Not Recovered/Not Resolved]
